FAERS Safety Report 7590862-1 (Version None)
Quarter: 2011Q3

REPORT INFORMATION
  Report Type: 
  Country: None (occurrence: None)
  Receive Date: 20110705
  Receipt Date: 20110623
  Transmission Date: 20111222
  Serious: Yes (Disabling)
  Sender: FDA-Public Use
  Company Number: PHHY2011IT56082

PATIENT
  Sex: Female

DRUGS (3)
  1. TAXOTERE [Concomitant]
     Route: 042
  2. ZOMETA [Suspect]
     Indication: METASTASES TO BONE
     Dosage: 4 MG, QMO
     Route: 042
     Dates: start: 20070707, end: 20110204
  3. TAXOL [Concomitant]
     Route: 042

REACTIONS (1)
  - OSTEONECROSIS OF JAW [None]
